FAERS Safety Report 14901824 (Version 1)
Quarter: 2018Q2

REPORT INFORMATION
  Report Type: Spontaneous
  Country: PL (occurrence: PL)
  Receive Date: 20180516
  Receipt Date: 20180516
  Transmission Date: 20180711
  Serious: Yes (Hospitalization, Other)
  Sender: FDA-Public Use
  Company Number: PL-CELLTRION INC.-2018PL019696

PATIENT

DRUGS (6)
  1. REMSIMA [Suspect]
     Active Substance: INFLIXIMAB
     Dosage: 300 MG
     Route: 042
  2. REMSIMA [Suspect]
     Active Substance: INFLIXIMAB
     Dosage: 300 MG
     Route: 042
  3. REMSIMA [Suspect]
     Active Substance: INFLIXIMAB
     Indication: CROHN^S DISEASE
     Dosage: 300 MG
     Route: 042
     Dates: start: 20180119, end: 20180119
  4. PENTASA [Concomitant]
     Active Substance: MESALAMINE
     Dosage: 3X2 TABKETES
  5. REMSIMA [Suspect]
     Active Substance: INFLIXIMAB
     Dosage: 300 MG
     Route: 042
     Dates: start: 20180427, end: 20180427
  6. VITAMIN D3 [Concomitant]
     Active Substance: CHOLECALCIFEROL
     Dosage: 1X2000J

REACTIONS (5)
  - Erythema [Unknown]
  - Neutropenia [Unknown]
  - Tachycardia [Unknown]
  - Cardiovascular symptom [Unknown]
  - Tongue disorder [Unknown]

NARRATIVE: CASE EVENT DATE: 20180427
